FAERS Safety Report 6505504-3 (Version None)
Quarter: 2009Q4

REPORT INFORMATION
  Report Type: 
  Country: None (occurrence: None)
  Receive Date: 20091218
  Receipt Date: 20091207
  Transmission Date: 20100525
  Serious: Yes (Other)
  Sender: FDA-Public Use
  Company Number: JP-PFIZER INC-2009308251

PATIENT
  Age: 75 Year
  Sex: Female

DRUGS (3)
  1. FARMORUBICIN [Suspect]
     Indication: BREAST CANCER RECURRENT
     Dosage: INJECTION
     Route: 042
  2. FLUOROURACIL [Suspect]
     Indication: BREAST CANCER RECURRENT
     Route: 048
  3. CYCLOPHOSPHAMIDE [Suspect]
     Indication: BREAST CANCER RECURRENT

REACTIONS (1)
  - INTERSTITIAL LUNG DISEASE [None]
